FAERS Safety Report 24205046 (Version 1)
Quarter: 2024Q3

REPORT INFORMATION
  Report Type: Spontaneous
  Country: TR (occurrence: None)
  Receive Date: 20240812
  Receipt Date: 20240812
  Transmission Date: 20241016
  Serious: Yes (Disabling)
  Sender: Public
  Company Number: None

PATIENT
  Age: 30 Year
  Sex: Female
  Weight: 56 kg

DRUGS (1)
  1. COSMETICS [Suspect]
     Active Substance: COSMETICS
     Indication: Skin cosmetic procedure
     Dates: start: 20220401, end: 20230701

REACTIONS (11)
  - Nonspecific reaction [None]
  - Skin wrinkling [None]
  - Muscular weakness [None]
  - Arthralgia [None]
  - Skin atrophy [None]
  - Dermatochalasis [None]
  - Bone disorder [None]
  - Burning sensation [None]
  - Dry skin [None]
  - Skin fissures [None]
  - ASIA syndrome [None]

NARRATIVE: CASE EVENT DATE: 20230701
